FAERS Safety Report 7214233-2 (Version None)
Quarter: 2011Q1

REPORT INFORMATION
  Report Type: 
  Country: None (occurrence: None)
  Receive Date: 20110107
  Receipt Date: 20101229
  Transmission Date: 20110831
  Serious: Yes (Other)
  Sender: FDA-Public Use
  Company Number: US-KINGPHARMUSA00001-K201001555

PATIENT
  Sex: Male

DRUGS (1)
  1. CORGARD [Suspect]
     Dosage: 40 MG, QD
     Route: 048
     Dates: start: 20081101

REACTIONS (3)
  - SPERMATOZOA ABNORMAL [None]
  - DRUG EXPOSURE DURING PREGNANCY [None]
  - MISCARRIAGE OF PARTNER [None]
